FAERS Safety Report 9925363 (Version 2)
Quarter: 2014Q1

REPORT INFORMATION
  Report Type: Spontaneous
  Country: JP (occurrence: JP)
  Receive Date: 20140226
  Receipt Date: 20140313
  Transmission Date: 20141002
  Serious: Yes (Other)
  Sender: FDA-Public Use
  Company Number: JP-PFIZER INC-2014054535

PATIENT
  Age: 88 Year
  Sex: Female

DRUGS (4)
  1. LYRICA [Suspect]
     Indication: BACK PAIN
     Dosage: 75 MG, 2X/DAY
     Route: 048
     Dates: start: 20140209, end: 20140210
  2. LYRICA [Suspect]
     Dosage: 75 MG, 1X/DAY
     Route: 048
     Dates: start: 20140211, end: 20140215
  3. SELEGILINE HYDROCHLORIDE [Concomitant]
     Dosage: 2.5 MG, DAILY
     Route: 048
     Dates: start: 20140209
  4. ALOSENN [Concomitant]
     Dosage: 1 G, DAILY
     Route: 048
     Dates: start: 20140209, end: 20140213

REACTIONS (3)
  - Wheelchair user [Unknown]
  - Dizziness [Recovered/Resolved]
  - Decreased appetite [Recovered/Resolved]
